FAERS Safety Report 18332656 (Version 1)
Quarter: 2020Q3

REPORT INFORMATION
  Report Type: Report from Study
  Country: US (occurrence: US)
  Receive Date: 20200930
  Receipt Date: 20200930
  Transmission Date: 20201103
  Serious: No
  Sender: FDA-Public Use
  Company Number: US-IGSA-SR10006924

PATIENT
  Age: 63 Year
  Sex: Female
  Weight: 81 kg

DRUGS (6)
  1. LEVALBUTEROL                       /01419301/ [Concomitant]
     Active Substance: LEVALBUTEROL
  2. PREMARIN [Concomitant]
     Active Substance: ESTROGENS, CONJUGATED
  3. GAMUNEX?C [Suspect]
     Active Substance: HUMAN IMMUNOGLOBULIN G
     Indication: IMMUNODEFICIENCY COMMON VARIABLE
     Dosage: UNK, UNKNOWN
     Route: 042
     Dates: start: 201707, end: 201707
  4. IPRATROPIUM BROMIDE. [Concomitant]
     Active Substance: IPRATROPIUM BROMIDE
  5. GAMUNEX?C [Suspect]
     Active Substance: HUMAN IMMUNOGLOBULIN G
     Indication: PRIMARY IMMUNODEFICIENCY SYNDROME
  6. DULERA [Concomitant]
     Active Substance: FORMOTEROL FUMARATE DIHYDRATE\MOMETASONE FUROATE

REACTIONS (5)
  - Rash [Recovered/Resolved]
  - Influenza like illness [Recovered/Resolved]
  - Hypersensitivity [Recovered/Resolved]
  - Migraine [Recovered/Resolved]
  - Nausea [Recovered/Resolved]

NARRATIVE: CASE EVENT DATE: 201705
